FAERS Safety Report 4981813-4 (Version None)
Quarter: 2006Q2

REPORT INFORMATION
  Report Type: 
  Country: None (occurrence: None)
  Receive Date: 20060425
  Receipt Date: 20060424
  Transmission Date: 20061013
  Serious: Yes (Hospitalization)
  Sender: FDA-Public Use
  Company Number: FR-GLAXOSMITHKLINE-B0421025A

PATIENT
  Age: 1 Day
  Sex: Male

DRUGS (2)
  1. CLAMOXYL [Suspect]
  2. UNSPECIFIED DRUG [Suspect]
     Dates: end: 20060208

REACTIONS (2)
  - DRUG EXPOSURE DURING PREGNANCY [None]
  - PULMONARY HYPERTENSION [None]
